FAERS Safety Report 11103605 (Version 1)
Quarter: 2015Q2

REPORT INFORMATION
  Report Type: Spontaneous
  Country: US (occurrence: None)
  Receive Date: 20150508
  Receipt Date: 20150508
  Transmission Date: 20150821
  Serious: No
  Sender: FDA-Public Use
  Company Number: None

PATIENT
  Age: 64 Year
  Sex: Female

DRUGS (1)
  1. ENBREL [Suspect]
     Active Substance: ETANERCEPT
     Dosage: ROUTE: SUBCUTANEOUS 057  STRENGTH: 50  DOSE FORM: INJECTABLE  FREQUENCY: WEEKLY
     Route: 058

REACTIONS (4)
  - Pyrexia [None]
  - Chills [None]
  - Feeling abnormal [None]
  - Vomiting [None]

NARRATIVE: CASE EVENT DATE: 20150501
